FAERS Safety Report 17730417 (Version 3)
Quarter: 2020Q4

REPORT INFORMATION
  Report Type: Spontaneous
  Country: SE (occurrence: SE)
  Receive Date: 20200430
  Receipt Date: 20201202
  Transmission Date: 20210113
  Serious: Yes (Other)
  Sender: FDA-Public Use
  Company Number: SE-VERTEX PHARMACEUTICALS-2020-005570

PATIENT

DRUGS (1)
  1. ORKAMBI [Suspect]
     Active Substance: IVACAFTOR\LUMACAFTOR
     Indication: CYSTIC FIBROSIS
     Dosage: UNK
     Route: 048

REACTIONS (20)
  - Drug interaction [Unknown]
  - Abnormal behaviour [Unknown]
  - Chest discomfort [Unknown]
  - Depression [Unknown]
  - Respiratory symptom [Unknown]
  - Gastrointestinal disorder [Unknown]
  - Anxiety [Unknown]
  - Epistaxis [Unknown]
  - Diarrhoea [Unknown]
  - Hepatic enzyme increased [Unknown]
  - Transplant [Unknown]
  - Liver transplant [Unknown]
  - Blood creatine phosphokinase increased [Unknown]
  - Dyspnoea [Unknown]
  - Headache [Unknown]
  - Drug ineffective [Unknown]
  - Nausea [Unknown]
  - Hypertension [Unknown]
  - Neutropenia [Unknown]
  - Abdominal pain [Unknown]
